FAERS Safety Report 4970104-3 (Version None)
Quarter: 2006Q2

REPORT INFORMATION
  Report Type: 
  Country: None (occurrence: None)
  Receive Date: 20060412
  Receipt Date: 20041126
  Transmission Date: 20061013
  Serious: Yes (Other)
  Sender: FDA-Public Use
  Company Number: PHBS2004CH16129

PATIENT
  Age: 70 Year
  Sex: Female

DRUGS (5)
  1. AREDIA [Suspect]
     Indication: BONE DISORDER
     Dosage: 90 MG, QW
     Route: 042
     Dates: start: 20010101
  2. FEMARA [Concomitant]
     Indication: BREAST CANCER
     Dosage: 2.5 MG/D
     Route: 065
     Dates: start: 20010101
  3. SYMMETREL [Concomitant]
     Indication: PARKINSON'S DISEASE
     Dosage: 300 MG/D
     Route: 065
  4. TRASICOR [Concomitant]
     Indication: HYPERTENSION
     Dosage: 40 MG/D
     Route: 065
  5. NEXIUM [Concomitant]
     Indication: OESOPHAGITIS
     Dosage: 20 MG/D
     Route: 065

REACTIONS (6)
  - OSTEITIS [None]
  - OSTEOLYSIS [None]
  - OSTEONECROSIS [None]
  - SEQUESTRECTOMY [None]
  - SINUSITIS [None]
  - TOOTH EXTRACTION [None]
